FAERS Safety Report 8308774-4 (Version None)
Quarter: 2012Q2

REPORT INFORMATION
  Report Type: 
  Country: None (occurrence: None)
  Receive Date: 20120424
  Receipt Date: 20120424
  Transmission Date: 20120825
  Serious: Yes (Death)
  Sender: FDA-Public Use
  Company Number: FR-PFIZER INC-2012002805

PATIENT
  Age: 64 Year
  Sex: Female

DRUGS (4)
  1. CLAVULANATE POTASSIUM [Suspect]
     Dosage: UNK
     Dates: end: 20101014
  2. AMBISOME [Suspect]
     Indication: BRONCHOPULMONARY ASPERGILLOSIS
     Dosage: 3 MG/KG, UNK
     Dates: start: 20100928, end: 20101025
  3. RIFATER [Suspect]
     Indication: TUBERCULOSIS
     Dosage: UNK
     Route: 048
     Dates: end: 20101002
  4. VFEND [Suspect]
     Indication: BRONCHOPULMONARY ASPERGILLOSIS
     Dosage: UNK
     Dates: start: 20101004, end: 20101014

REACTIONS (1)
  - CHOLESTASIS [None]
